FAERS Safety Report 5875815-3 (Version None)
Quarter: 2008Q3

REPORT INFORMATION
  Report Type: 
  Country: None (occurrence: None)
  Receive Date: 20080908
  Receipt Date: 20080818
  Transmission Date: 20090109
  Serious: Yes (Other)
  Sender: FDA-Public Use
  Company Number: US_000134783

PATIENT
  Age: 3 Week
  Sex: Female
  Weight: 3.6 kg

DRUGS (3)
  1. PROZAC [Suspect]
     Dosage: TRANSPLACENTAL
     Route: 064
  2. CARBAMAZEPINE [Concomitant]
  3. BUSPIRONE HCL [Concomitant]

REACTIONS (5)
  - CONVULSION [None]
  - CYANOSIS [None]
  - DRUG EXPOSURE VIA BREAST MILK [None]
  - LOSS OF CONSCIOUSNESS [None]
  - MATERNAL DRUGS AFFECTING FOETUS [None]
